FAERS Safety Report 17677731 (Version 2)
Quarter: 2020Q3

REPORT INFORMATION
  Report Type: Spontaneous
  Country: QA (occurrence: QA)
  Receive Date: 20200416
  Receipt Date: 20200430
  Transmission Date: 20201104
  Serious: No
  Sender: FDA-Public Use
  Company Number: QA-PFIZER INC-2020157554

PATIENT
  Age: 59 Year
  Sex: Female

DRUGS (2)
  1. CRIZOTINIB [Suspect]
     Active Substance: CRIZOTINIB
     Indication: LUNG NEOPLASM MALIGNANT
     Dosage: 250 MG, 2X/DAY
     Route: 048
     Dates: start: 20190418
  2. ALECTINIB. [Suspect]
     Active Substance: ALECTINIB
     Dosage: UNK
     Dates: start: 20191204

REACTIONS (1)
  - Neoplasm progression [Unknown]
